FAERS Safety Report 9705632 (Version 1)
Quarter: 2013Q4

REPORT INFORMATION
  Report Type: Spontaneous
  Country: US (occurrence: US)
  Receive Date: 20131122
  Receipt Date: 20131122
  Transmission Date: 20140711
  Serious: No
  Sender: FDA-Public Use
  Company Number: US-GILEAD-2008-0017345

PATIENT
  Sex: Female
  Weight: 52.62 kg

DRUGS (12)
  1. LETAIRIS [Suspect]
     Indication: PULMONARY ARTERIAL HYPERTENSION
     Route: 048
     Dates: start: 20080301
  2. LASIX [Concomitant]
     Route: 048
  3. NORVASC [Concomitant]
     Route: 048
  4. VIAGRA [Concomitant]
     Route: 048
  5. OMNICEF [Concomitant]
     Route: 048
  6. PRILOSEC [Concomitant]
     Route: 048
  7. LAMICTAL [Concomitant]
     Route: 048
  8. SPIRONOLACTONE [Concomitant]
     Route: 048
  9. ASPIRIN [Concomitant]
     Route: 048
  10. POTASSIUM CHLORIDE [Concomitant]
     Route: 048
  11. AMBIEN [Concomitant]
     Route: 048
  12. OXYGEN [Concomitant]
     Route: 055

REACTIONS (1)
  - Rash [None]
